FAERS Safety Report 4441900-6 (Version None)
Quarter: 2004Q3

REPORT INFORMATION
  Report Type: 
  Country: None (occurrence: None)
  Receive Date: 20040901
  Receipt Date: 20030429
  Transmission Date: 20050211
  Serious: Yes (Hospitalization)
  Sender: FDA-Public Use
  Company Number: 2004230151CA

PATIENT
  Age: 75 Year
  Sex: Male

DRUGS (4)
  1. ZYVOX [Suspect]
     Indication: STAPHYLOCOCCAL INFECTION
     Dosage: 600 MG, BID, ORAL
     Route: 048
     Dates: start: 20020911, end: 20021011
  2. CEFAZOLIN [Concomitant]
  3. LEVAQUIN [Concomitant]
  4. VANCOMYCIN [Concomitant]

REACTIONS (3)
  - CARDIOGENIC SHOCK [None]
  - MYOCARDIAL INFARCTION [None]
  - UPPER GASTROINTESTINAL HAEMORRHAGE [None]
